FAERS Safety Report 8908563 (Version 1)
Quarter: 2012Q4

REPORT INFORMATION
  Report Type: 
  Country: US (occurrence: US)
  Receive Date: 20121114
  Receipt Date: 20121114
  Transmission Date: 20130627
  Serious: Yes (Death)
  Sender: FDA-Public Use
  Company Number: US-PFIZER INC-2012281241

PATIENT
  Age: 7 Week
  Sex: Male
  Weight: 5 kg

DRUGS (2)
  1. CHLORAMPHENICOL [Suspect]
     Indication: MENINGITIS
     Dosage: 75 mg/kg, 4x/day
  2. AMPICILLIN [Concomitant]
     Indication: MENINGITIS
     Dosage: 100 mg/kg, 4x/day

REACTIONS (4)
  - Overdose [Fatal]
  - Grey syndrome neonatal [Fatal]
  - Cardiac arrest [Fatal]
  - Hepatic function abnormal [Fatal]
